FAERS Safety Report 8524574-4 (Version None)
Quarter: 2012Q2

REPORT INFORMATION
  Report Type: 
  Country: None (occurrence: None)
  Receive Date: 20120406
  Receipt Date: 20110711
  Transmission Date: 20120825
  Serious: Yes (Other)
  Sender: FDA-Public Use
  Company Number: US-2011-10507

PATIENT
  Age: 20 Year
  Sex: Female

DRUGS (8)
  1. BUSULFEX [Suspect]
     Indication: STEM CELL TRANSPLANT
     Dosage: 12.8 MG/KG, DAILY DOSE, INTRAVENOUS
     Route: 042
  2. ACETAMINOPHEN [Concomitant]
  3. METHYLPREDNISOLONE [Concomitant]
  4. PHENYTOIN (PHENYTOIN) [Concomitant]
  5. ALEMTUZUMAB (ALEMTUZUMAB) [Concomitant]
  6. TACROLIMUS [Concomitant]
  7. DIPHENHYDRAMINE HCL [Concomitant]
  8. FLUDARABINE PHOSPHATE [Concomitant]

REACTIONS (1)
  - GRAFT VERSUS HOST DISEASE IN INTESTINE [None]
